FAERS Safety Report 4369290-8 (Version None)
Quarter: 2004Q2

REPORT INFORMATION
  Report Type: 
  Country: None (occurrence: None)
  Receive Date: 20040602
  Receipt Date: 20040504
  Transmission Date: 20050107
  Serious: Yes (Hospitalization)
  Sender: FDA-Public Use
  Company Number: 2004AP000442

PATIENT
  Age: 57 Year
  Sex: Male

DRUGS (5)
  1. PAROXETINE HYDROCHLORIDE [Suspect]
     Indication: ARTHRALGIA
     Dosage: 20 MG; TWICE A DAY; ORAL
     Route: 048
  2. DIGOXIN [Concomitant]
  3. SIMVASTATIN [Concomitant]
  4. ATENOLOL [Concomitant]
  5. ASPIRIN [Concomitant]

REACTIONS (9)
  - ACTIVATED PARTIAL THROMBOPLASTIN TIME PROLONGED [None]
  - CARDIAC STRESS TEST ABNORMAL [None]
  - CHEST PAIN [None]
  - HEART RATE DECREASED [None]
  - HYPERHIDROSIS [None]
  - INTERNATIONAL NORMALISED RATIO DECREASED [None]
  - PAIN [None]
  - TRANSIENT ISCHAEMIC ATTACK [None]
  - VASCULAR CALCIFICATION [None]
